FAERS Safety Report 16430447 (Version 2)
Quarter: 2019Q3

REPORT INFORMATION
  Report Type: Spontaneous
  Country: US (occurrence: US)
  Receive Date: 20190614
  Receipt Date: 20190927
  Transmission Date: 20191004
  Serious: Yes (Other)
  Sender: FDA-Public Use
  Company Number: US-HIKMA PHARMACEUTICALS USA INC.-US-H14001-19-45628

PATIENT
  Age: 66 Year
  Sex: Male
  Weight: 97 kg

DRUGS (6)
  1. METHOTREXATE. [Interacting]
     Active Substance: METHOTREXATE
     Dosage: (CYCLE 3)
     Route: 042
     Dates: start: 20161129, end: 20161129
  2. METHOTREXATE. [Interacting]
     Active Substance: METHOTREXATE
     Dosage: (CYCLE 1)
     Route: 042
     Dates: start: 20161013, end: 20161013
  3. METHOTREXATE. [Suspect]
     Active Substance: METHOTREXATE
     Indication: MANTLE CELL LYMPHOMA
     Dosage: HDMTX OVER 2 HOURS
     Route: 041
     Dates: start: 20161116, end: 20161116
  4. PRIMAQUINE [Interacting]
     Active Substance: PRIMAQUINE PHOSPHATE
     Indication: PNEUMOCYSTIS JIROVECII PNEUMONIA
     Route: 048
     Dates: start: 20161110, end: 20161117
  5. METHOTREXATE. [Interacting]
     Active Substance: METHOTREXATE
     Dosage: (CYCLE 2)
     Route: 042
     Dates: start: 20161116, end: 20161116
  6. CLINDAMYCIN. [Concomitant]
     Active Substance: CLINDAMYCIN
     Indication: PNEUMOCYSTIS JIROVECII PNEUMONIA
     Route: 048
     Dates: start: 20161110

REACTIONS (2)
  - Drug clearance increased [Recovered/Resolved]
  - Drug interaction [Recovered/Resolved]

NARRATIVE: CASE EVENT DATE: 20161116
